FAERS Safety Report 18733852 (Version 1)
Quarter: 2021Q1

REPORT INFORMATION
  Report Type: Spontaneous
  Country: US (occurrence: US)
  Receive Date: 20210111
  Receipt Date: 20210111
  Transmission Date: 20210419
  Serious: Yes (Other)
  Sender: FDA-Public Use
  Company Number: None

PATIENT
  Age: 75 Year
  Sex: Female

DRUGS (10)
  1. ALBUTEROL. [Concomitant]
     Active Substance: ALBUTEROL
  2. ATORVASTATIN [Concomitant]
     Active Substance: ATORVASTATIN
  3. NOURIANZ [Suspect]
     Active Substance: ISTRADEFYLLINE
     Indication: PARKINSON^S DISEASE
     Dosage: ?          QUANTITY:20 MG MILLIGRAM(S);?
     Route: 048
     Dates: start: 20201023, end: 20201220
  4. AMANTADINE. [Concomitant]
     Active Substance: AMANTADINE HYDROCHLORIDE
  5. SINEMET [Concomitant]
     Active Substance: CARBIDOPA\LEVODOPA
  6. DEXILANT [Concomitant]
     Active Substance: DEXLANSOPRAZOLE
  7. ELIQUIS [Concomitant]
     Active Substance: APIXABAN
  8. NEUPRO [Concomitant]
     Active Substance: ROTIGOTINE
  9. CHLORHEXIDINE [Concomitant]
     Active Substance: CHLORHEXIDINE
  10. ENTACAPONE. [Concomitant]
     Active Substance: ENTACAPONE

REACTIONS (4)
  - Skin discolouration [None]
  - Skin exfoliation [None]
  - Rash macular [None]
  - Rash pruritic [None]

NARRATIVE: CASE EVENT DATE: 20201101
